FAERS Safety Report 10219812 (Version 1)
Quarter: 2014Q1

REPORT INFORMATION
  Report Type: Spontaneous
  Country: US (occurrence: None)
  Receive Date: 20140306
  Receipt Date: 20140306
  Transmission Date: 20141002
  Serious: Yes (Hospitalization, Other)
  Sender: FDA-Public Use
  Company Number: 163-21880-12090358

PATIENT
  Age: 89 Year
  Sex: Male

DRUGS (15)
  1. REVLIMID (LENALIDOMIDE) (CAPSULES) [Suspect]
     Indication: MYELODYSPLASTIC SYNDROME
     Route: 048
     Dates: start: 20120702
  2. VITAMIN B12 (CYANOCOBALAMIN) [Concomitant]
  3. MULTIVITAMINS (MULTIVITAMINS) [Concomitant]
  4. CRANBERRY (CRANBERRY BERCO) (TABLETS) [Concomitant]
  5. VITAMIN C (ASCORBIC ACID) [Concomitant]
  6. IRON (IRON) [Concomitant]
  7. NORVASC (AMLODIPINE BESILATE) [Concomitant]
  8. AVAPRO (IRBESARTAN) [Concomitant]
  9. DULCOLAX (BISACODYL) [Concomitant]
  10. LASIX (FUROSEMIDE) [Concomitant]
  11. ASCORBIC ACID (ASCORBIC ACID) [Concomitant]
  12. DIOVAN (VALSARTAN) [Concomitant]
  13. PROTONIX [Concomitant]
  14. INFED (IRON DEXTRAN) [Concomitant]
  15. SPIRLACTONE [Concomitant]

REACTIONS (5)
  - Cardiac failure congestive [None]
  - Oedema peripheral [None]
  - Rash maculo-papular [None]
  - Pneumonia [None]
  - Heart rate decreased [None]
